FAERS Safety Report 10690099 (Version 2)
Quarter: 2015Q1

REPORT INFORMATION
  Report Type: Spontaneous
  Country: US (occurrence: US)
  Receive Date: 20150105
  Receipt Date: 20150122
  Transmission Date: 20150720
  Serious: No
  Sender: FDA-Public Use
  Company Number: US-TEVA-532218USA

PATIENT
  Age: 34 Year
  Sex: Female
  Weight: 99.88 kg

DRUGS (3)
  1. PHENTERMINE [Concomitant]
     Active Substance: PHENTERMINE
     Indication: DECREASED APPETITE
  2. PLAN B ONE-STEP [Suspect]
     Active Substance: LEVONORGESTREL
     Indication: POST COITAL CONTRACEPTION
     Dosage: 1.5 MILLIGRAM DAILY;
     Route: 048
     Dates: start: 20141222, end: 20141222
  3. STEROID ANTIBIOTIC [Concomitant]
     Indication: EYE INFECTION

REACTIONS (5)
  - Diarrhoea [Recovered/Resolved]
  - Pollakiuria [Recovered/Resolved]
  - Dysmenorrhoea [Recovered/Resolved]
  - Flatulence [Recovered/Resolved]
  - Nausea [Recovered/Resolved]

NARRATIVE: CASE EVENT DATE: 20141223
